FAERS Safety Report 23264019 (Version 1)
Quarter: 2023Q4

REPORT INFORMATION
  Report Type: Spontaneous
  Country: FR (occurrence: FR)
  Receive Date: 20231205
  Receipt Date: 20231205
  Transmission Date: 20240110
  Serious: Yes (Other)
  Sender: FDA-Public Use
  Company Number: FR-ELI_LILLY_AND_COMPANY-FR202311014880

PATIENT
  Sex: Female

DRUGS (2)
  1. TALTZ [Suspect]
     Active Substance: IXEKIZUMAB
     Indication: Psoriasis
     Dosage: UNK UNK, UNKNOWN
     Route: 065
     Dates: start: 2023, end: 202308
  2. METHOTREXATE [Concomitant]
     Active Substance: METHOTREXATE
     Indication: Psoriasis
     Dosage: UNK
     Dates: start: 202202

REACTIONS (8)
  - Deafness [Recovering/Resolving]
  - Gingival recession [Recovering/Resolving]
  - Loose tooth [Recovering/Resolving]
  - Dyspnoea [Recovering/Resolving]
  - Rhinorrhoea [Recovering/Resolving]
  - Haematochezia [Recovering/Resolving]
  - Oral candidiasis [Recovering/Resolving]
  - Oropharyngeal pain [Recovering/Resolving]
